FAERS Safety Report 5108790-X (Version None)
Quarter: 2006Q3

REPORT INFORMATION
  Report Type: 
  Country: None (occurrence: None)
  Receive Date: 20060920
  Receipt Date: 20060421
  Transmission Date: 20061208
  Serious: Yes (Hospitalization)
  Sender: FDA-Public Use
  Company Number: FR-BAYER-200610395BFR

PATIENT
  Age: 68 Year
  Sex: Male
  Weight: 70 kg

DRUGS (10)
  1. SORAFENIB [Suspect]
     Indication: RENAL CELL CARCINOMA STAGE UNSPECIFIED
     Dosage: TOTAL DAILY DOSE: 800 MG  UNIT DOSE: 200 MG
     Route: 048
     Dates: start: 20060220, end: 20060327
  2. SORAFENIB [Suspect]
     Dosage: TOTAL DAILY DOSE: 800 MG  UNIT DOSE: 200 MG
     Route: 048
     Dates: start: 20060327, end: 20060421
  3. SORAFENIB [Suspect]
     Dosage: TOTAL DAILY DOSE: 800 MG  UNIT DOSE: 200 MG
     Route: 048
     Dates: start: 20060505, end: 20060612
  4. SORAFENIB [Suspect]
     Dosage: TOTAL DAILY DOSE: 800 MG  UNIT DOSE: 200 MG
     Route: 048
     Dates: start: 20060613, end: 20060717
  5. SORAFENIB [Suspect]
     Dosage: TOTAL DAILY DOSE: 800 MG  UNIT DOSE: 200 MG
     Route: 048
     Dates: start: 20060718
  6. SOLUPRED [Concomitant]
     Indication: PROPHYLAXIS
     Dates: start: 20050101, end: 20060505
  7. PLAVIX [Concomitant]
     Indication: CORONARY ARTERY INSUFFICIENCY
     Route: 048
     Dates: start: 20030101, end: 20060421
  8. SECTRAL [Concomitant]
     Indication: CORONARY ARTERY INSUFFICIENCY
     Route: 048
     Dates: start: 20020101
  9. BLOOD TRANSFUSION [Concomitant]
     Indication: ANAEMIA
     Dates: start: 20060220, end: 20060220
  10. ASPIRIN [Concomitant]
     Indication: CORONARY ARTERY INSUFFICIENCY
     Dates: start: 20060401

REACTIONS (3)
  - ANAEMIA [None]
  - EPISTAXIS [None]
  - PNEUMOTHORAX [None]
